FAERS Safety Report 7523079-7 (Version None)
Quarter: 2011Q2

REPORT INFORMATION
  Report Type: 
  Country: None (occurrence: None)
  Receive Date: 20110601
  Receipt Date: 20110601
  Transmission Date: 20111010
  Serious: Yes (Hospitalization)
  Sender: FDA-Public Use
  Company Number: None

PATIENT
  Age: 43 Year
  Sex: Male
  Weight: 76 kg

DRUGS (1)
  1. CARBAMAZEPINE [Suspect]
     Indication: BIPOLAR DISORDER
     Dosage: 400 MG AT BEDTIME PO
     Route: 048
     Dates: start: 20110217, end: 20110417

REACTIONS (6)
  - OROPHARYNGEAL PAIN [None]
  - WEIGHT DECREASED [None]
  - PYREXIA [None]
  - CHILLS [None]
  - DRUG RASH WITH EOSINOPHILIA AND SYSTEMIC SYMPTOMS [None]
  - DYSPHAGIA [None]
